FAERS Safety Report 9714966 (Version 1)
Quarter: 2013Q4

REPORT INFORMATION
  Report Type: Spontaneous
  Country: US (occurrence: US)
  Receive Date: 20131126
  Receipt Date: 20131126
  Transmission Date: 20140711
  Serious: No
  Sender: FDA-Public Use
  Company Number: US-NOVEN-13US007500

PATIENT
  Sex: Female

DRUGS (2)
  1. MINIVELLE [Suspect]
     Indication: HOT FLUSH
     Dosage: 0.075 MG/DAY, TWICE WEEKLY
     Route: 062
     Dates: start: 201307, end: 2013
  2. MINIVELLE [Suspect]
     Dosage: 0.075 MG/DAY, TWICE WEEKLY
     Route: 062
     Dates: start: 2013

REACTIONS (3)
  - Crying [Not Recovered/Not Resolved]
  - Emotional disorder [Not Recovered/Not Resolved]
  - Inappropriate schedule of drug administration [Not Recovered/Not Resolved]
